FAERS Safety Report 13398151 (Version 1)
Quarter: 2017Q2

REPORT INFORMATION
  Report Type: Report from Study
  Country: AU (occurrence: AU)
  Receive Date: 20170403
  Receipt Date: 20170403
  Transmission Date: 20170830
  Serious: Yes (Other)
  Sender: FDA-Public Use
  Company Number: AU-REGENERON PHARMACEUTICALS, INC.-2017-13989

PATIENT

DRUGS (1)
  1. EYLEA [Suspect]
     Active Substance: AFLIBERCEPT
     Indication: NEOVASCULAR AGE-RELATED MACULAR DEGENERATION
     Dosage: 2 MG, LOADING DOSE
     Route: 031
     Dates: start: 20160404

REACTIONS (3)
  - Foreign body sensation in eyes [Recovered/Resolved]
  - Ocular discomfort [Unknown]
  - Macular oedema [Unknown]

NARRATIVE: CASE EVENT DATE: 20160404
